FAERS Safety Report 8355979 (Version 4)
Quarter: 2012Q4

REPORT INFORMATION
  Report Type: 
  Country: US (occurrence: US)
  Receive Date: 20120126
  Receipt Date: 20121012
  Transmission Date: 20130627
  Serious: Yes (Hospitalization)
  Sender: FDA-Public Use
  Company Number: US-ACTELION-A-US2012-59998

PATIENT
  Age: 3 Year
  Sex: Female

DRUGS (5)
  1. TRACLEER [Suspect]
     Indication: PULMONARY ARTERIAL HYPERTENSION
     Dosage: UNK
     Route: 048
  2. REVATIO [Concomitant]
  3. HEPARIN [Concomitant]
  4. REMODULIN [Concomitant]
  5. ASPIRIN [Concomitant]

REACTIONS (6)
  - Device related infection [Unknown]
  - Pyrexia [Unknown]
  - Heart rate abnormal [Unknown]
  - Central venous catheterisation [Unknown]
  - Pulmonary arterial hypertension [Unknown]
  - Condition aggravated [Unknown]
